FAERS Safety Report 24760180 (Version 1)
Quarter: 2024Q4

REPORT INFORMATION
  Report Type: Spontaneous
  Country: US (occurrence: None)
  Receive Date: 20241219
  Receipt Date: 20241219
  Transmission Date: 20250115
  Serious: Yes (unspecified)
  Sender: Public
  Company Number: None

PATIENT
  Age: 20 Year
  Sex: Female
  Weight: 63.9 kg

DRUGS (5)
  1. SINGULAIR [Suspect]
     Active Substance: MONTELUKAST SODIUM
     Indication: Multiple allergies
     Dosage: OTHER QUANTITY : 1 TABLET(S);?FREQUENCY : DAILY;?
     Route: 048
     Dates: start: 20170222, end: 20241101
  2. VYVANSE [Concomitant]
     Active Substance: LISDEXAMFETAMINE DIMESYLATE
  3. ESTARYLLA [Concomitant]
     Active Substance: ETHINYL ESTRADIOL\NORGESTIMATE
  4. certirizine [Concomitant]
  5. ARIPIPRAZOLE [Concomitant]
     Active Substance: ARIPIPRAZOLE

REACTIONS (18)
  - Anxiety [None]
  - Anger [None]
  - Irritability [None]
  - Depression [None]
  - Arthralgia [None]
  - Hypoaesthesia [None]
  - Contusion [None]
  - Nightmare [None]
  - Insomnia [None]
  - Suicidal ideation [None]
  - Suicidal behaviour [None]
  - Attention deficit hyperactivity disorder [None]
  - Bipolar disorder [None]
  - Heart rate increased [None]
  - Abdominal pain upper [None]
  - Quality of life decreased [None]
  - Therapy cessation [None]
  - Product prescribing error [None]
